FAERS Safety Report 8832379 (Version 2)
Quarter: 2013Q2

REPORT INFORMATION
  Report Type: Spontaneous
  Country: US (occurrence: US)
  Receive Date: 20121009
  Receipt Date: 20130422
  Transmission Date: 20140414
  Serious: Yes (Hospitalization, Other)
  Sender: FDA-Public Use
  Company Number: US-ROCHE-1072443

PATIENT
  Age: 16 Year
  Sex: Male
  Weight: 39.95 kg

DRUGS (4)
  1. ACCUTANE [Suspect]
     Indication: ACNE
     Route: 048
     Dates: start: 19981217, end: 19990505
  2. ACCUTANE [Suspect]
     Route: 048
     Dates: start: 19981217, end: 199905
  3. DOXYCYCLINE [Concomitant]
     Route: 065
  4. RETIN-A [Concomitant]
     Route: 065

REACTIONS (8)
  - Colitis ulcerative [Unknown]
  - Inflammatory bowel disease [Unknown]
  - Coeliac disease [Unknown]
  - Neck pain [Unknown]
  - Rash [Unknown]
  - Dry skin [Unknown]
  - Lip dry [Unknown]
  - Aspartate aminotransferase increased [Unknown]
